FAERS Safety Report 21086383 (Version 1)
Quarter: 2022Q3

REPORT INFORMATION
  Report Type: Report from Study
  Country: CA (occurrence: CA)
  Receive Date: 20220715
  Receipt Date: 20220715
  Transmission Date: 20221027
  Serious: Yes (Other)
  Sender: FDA-Public Use
  Company Number: CA-NOVARTISPH-NVSC2022CA130571

PATIENT
  Age: 62 Year
  Sex: Female

DRUGS (1)
  1. ELTROMBOPAG OLAMINE [Suspect]
     Active Substance: ELTROMBOPAG OLAMINE
     Indication: Aplastic anaemia
     Dosage: 150 MG, QD
     Route: 048
     Dates: start: 20220430

REACTIONS (8)
  - Paroxysmal nocturnal haemoglobinuria [Recovering/Resolving]
  - Back pain [Recovering/Resolving]
  - Platelet count abnormal [Recovering/Resolving]
  - Petechiae [Unknown]
  - Contusion [Unknown]
  - COVID-19 [Unknown]
  - Rhinorrhoea [Unknown]
  - Oropharyngeal pain [Unknown]

NARRATIVE: CASE EVENT DATE: 20220501
